FAERS Safety Report 12296347 (Version 1)
Quarter: 2016Q2

REPORT INFORMATION
  Report Type: Spontaneous
  Country: NZ (occurrence: NZ)
  Receive Date: 20160422
  Receipt Date: 20160422
  Transmission Date: 20160815
  Serious: Yes (Other)
  Sender: FDA-Public Use
  Company Number: PHHY2016NZ052586

PATIENT
  Age: 41 Year
  Sex: Female

DRUGS (1)
  1. DICLOFENAC [Suspect]
     Active Substance: DICLOFENAC
     Indication: PRODUCT USED FOR UNKNOWN INDICATION
     Dosage: UNK
     Route: 048

REACTIONS (5)
  - Hepatic enzyme increased [Unknown]
  - Headache [Unknown]
  - Vomiting [Unknown]
  - Acute kidney injury [Unknown]
  - Nausea [Unknown]

NARRATIVE: CASE EVENT DATE: 201511
